FAERS Safety Report 10250020 (Version 1)
Quarter: 2014Q2

REPORT INFORMATION
  Report Type: Spontaneous
  Country: US (occurrence: US)
  Receive Date: 20140620
  Receipt Date: 20140620
  Transmission Date: 20141212
  Serious: No
  Sender: FDA-Public Use
  Company Number: US-BRISTOL-MYERS SQUIBB COMPANY-20584785

PATIENT
  Age: 84 Year
  Sex: Male
  Weight: 69.39 kg

DRUGS (11)
  1. ELIQUIS [Suspect]
     Indication: ATRIAL FIBRILLATION
  2. LISINOPRIL [Concomitant]
  3. POTASSIUM CHLORIDE [Concomitant]
  4. ATORVASTATIN [Concomitant]
  5. FUROSEMIDE [Concomitant]
  6. BABY ASPIRIN [Concomitant]
  7. FAMOTIDINE [Concomitant]
     Dosage: 1 DF=40 NO UNITS
  8. AMLODIPINE BESYLATE [Concomitant]
  9. DOXEPIN [Concomitant]
  10. GLUCOSAMINE [Concomitant]
  11. TIMOLOL [Concomitant]
     Dosage: TIMOLOL 0.5% ONE DROP IN LEFT EYE DAILY.

REACTIONS (1)
  - Haemorrhage [Unknown]
